FAERS Safety Report 9819371 (Version 2)
Quarter: 2014Q1

REPORT INFORMATION
  Report Type: Spontaneous
  Country: HR (occurrence: HR)
  Receive Date: 20140115
  Receipt Date: 20140203
  Transmission Date: 20141002
  Serious: Yes (Other)
  Sender: FDA-Public Use
  Company Number: HR-PFIZER INC-2014010931

PATIENT
  Age: 39 Year
  Sex: Female
  Weight: 65 kg

DRUGS (4)
  1. XANAX [Suspect]
     Indication: DEPRESSION
     Dosage: 0.5 MG, 1X/DAY
     Dates: start: 20131015, end: 20131016
  2. EGLONYL FORTE [Concomitant]
     Indication: DEPRESSION
     Dosage: 200 MG, 1X/DAY
     Route: 048
  3. CALIXTA [Concomitant]
     Indication: DEPRESSION
     Dosage: UNK
     Route: 048
  4. PROPRANOLOL SANDOZ [Concomitant]
     Indication: TACHYCARDIA
     Dosage: 40 MG, 2X/DAY

REACTIONS (4)
  - Insomnia [Recovered/Resolved]
  - Restlessness [Recovered/Resolved]
  - Psychomotor hyperactivity [Recovered/Resolved]
  - Fear [Recovered/Resolved]
